FAERS Safety Report 8602452 (Version 5)
Quarter: 2014Q1

REPORT INFORMATION
  Report Type: Spontaneous
  Country: FR (occurrence: FR)
  Receive Date: 20120607
  Receipt Date: 20140113
  Transmission Date: 20141002
  Serious: Yes (Life-Threatening, Hospitalization)
  Sender: FDA-Public Use
  Company Number: FR-NOVOPROD-352947

PATIENT
  Age: 31 Year
  Sex: Female

DRUGS (20)
  1. NOVOSEVEN [Suspect]
     Indication: THIRD STAGE POSTPARTUM HAEMORRHAGE
     Dosage: 4 MG, QD
     Route: 042
     Dates: start: 20120108, end: 20120108
  2. EPHEDRINE [Suspect]
     Indication: SPINAL ANAESTHESIA
     Dosage: 60 MG, QD
     Route: 042
     Dates: start: 20120108, end: 20120108
  3. EXACYL [Suspect]
     Indication: POSTPARTUM HAEMORRHAGE
     Dosage: 4 G, QD
     Route: 042
     Dates: start: 20120108, end: 20120108
  4. TAGAMET /00397401/ [Suspect]
     Indication: SPINAL ANAESTHESIA
     Dosage: 400 MG, QD
     Route: 065
     Dates: start: 20120108, end: 20120108
  5. BUPIVACAINE AGUETTANT [Suspect]
     Indication: SPINAL ANAESTHESIA
     Dosage: 10 MG, QD
     Route: 008
     Dates: start: 20120108, end: 20120108
  6. SUFENTA [Suspect]
     Indication: PRODUCT USED FOR UNKNOWN INDICATION
     Dosage: UNK
     Route: 065
     Dates: start: 20120108
  7. PABAL [Suspect]
     Indication: UTERINE ATONY
     Dosage: 100 UG, QD
     Route: 042
     Dates: start: 20120108, end: 20120108
  8. CEFAZOLINE [Suspect]
     Indication: ANTIBIOTIC PROPHYLAXIS
     Dosage: ONCE DAILY
     Route: 042
     Dates: start: 20120108, end: 20120108
  9. CLOTTAFACT [Suspect]
     Indication: THIRD STAGE POSTPARTUM HAEMORRHAGE
     Dosage: 6 G, QD
     Route: 042
     Dates: start: 20120108, end: 20120108
  10. NALADOR [Suspect]
     Indication: PRODUCT USED FOR UNKNOWN INDICATION
     Dosage: 1000 UG, QD
     Route: 042
     Dates: start: 20120108, end: 20120108
  11. SEVOFLURANE BAXTER [Suspect]
     Indication: ANAESTHESIA
     Dosage: UNK
     Route: 055
     Dates: start: 20120108, end: 20120108
  12. CELOCURINE /00057702/ [Suspect]
     Indication: ENDOTRACHEAL INTUBATION
     Dosage: ONCE DOSE
     Route: 042
     Dates: start: 20120108, end: 20120108
  13. TRACRIUM [Suspect]
     Indication: ANAESTHESIA
     Dosage: UNK
     Route: 042
     Dates: start: 20120108, end: 20120108
  14. NEOSYNEPHRINE [Suspect]
     Indication: SPINAL ANAESTHESIA
     Dosage: 100 UG, SINGLE
     Dates: start: 20120108
  15. ETOMIDATE [Suspect]
     Indication: DIALYSIS
     Dosage: UNK
     Dates: start: 20120108, end: 20120108
  16. VOLUVEN [Concomitant]
     Indication: POSTPARTUM HAEMORRHAGE
     Dosage: UNK
     Route: 065
  17. DIPRIVAN [Concomitant]
     Dosage: UNK
     Route: 042
     Dates: start: 20120108, end: 20120108
  18. RED BLOOD CELLS [Concomitant]
  19. PLASMA, FRESH FROZEN [Concomitant]
     Indication: THIRD STAGE POSTPARTUM HAEMORRHAGE
     Dosage: 3 PACKS OF FRESH FROZEN PLASMA
     Route: 065
  20. PLATELETS, CONCENTRATED [Concomitant]
     Indication: THIRD STAGE POSTPARTUM HAEMORRHAGE
     Dosage: UNK

REACTIONS (2)
  - Renal failure acute [Recovered/Resolved]
  - Dialysis [Recovered/Resolved]
